FAERS Safety Report 26067761 (Version 2)
Quarter: 2025Q4

REPORT INFORMATION
  Report Type: Spontaneous
  Country: EU (occurrence: EU)
  Receive Date: 20251120
  Receipt Date: 20251202
  Transmission Date: 20260118
  Serious: Yes (Other)
  Sender: TORRENT PHARMA INC.
  Company Number: None

PATIENT
  Age: 30 Year
  Sex: Male
  Weight: 106 kg

DRUGS (1)
  1. VENLAFAXINE [Suspect]
     Active Substance: VENLAFAXINE HYDROCHLORIDE
     Indication: Depression
     Dosage: 37.5 START MAX D: 150MG, CURRENTLY TAPERED OFF / GRADUALLY REDUCED 37.5MG OF SEVERE PARESTHESIA
     Route: 048
     Dates: start: 20231201, end: 20251104

REACTIONS (6)
  - Hypertension [Recovering/Resolving]
  - Multiple sclerosis [Recovering/Resolving]
  - Paraesthesia [Recovering/Resolving]
  - Dizziness [Recovering/Resolving]
  - Presyncope [Recovering/Resolving]
  - Withdrawal syndrome [Recovering/Resolving]

NARRATIVE: CASE EVENT DATE: 20231214
